FAERS Safety Report 17297346 (Version 1)
Quarter: 2020Q1

REPORT INFORMATION
  Report Type: Spontaneous
  Country: IT (occurrence: IT)
  Receive Date: 20200121
  Receipt Date: 20200121
  Transmission Date: 20200409
  Serious: Yes (Other)
  Sender: FDA-Public Use
  Company Number: IT-MYLANLABS-2020M1005429

PATIENT
  Age: 68 Year
  Sex: Male

DRUGS (4)
  1. VORICONAZOLE. [Suspect]
     Active Substance: VORICONAZOLE
     Dosage: 200 MG, UNK (WAS ADJUSTED FROM 300 MG TO 200 MG)
     Route: 048
     Dates: start: 201701
  2. TACROLIMUS. [Concomitant]
     Active Substance: TACROLIMUS
     Dosage: UNK
  3. VORICONAZOLE. [Suspect]
     Active Substance: VORICONAZOLE
     Indication: ANTIFUNGAL TREATMENT
     Dosage: 4 MG/KG, 2X/DAY (4 MG/KG (300 MG) EVERY 12 HOURS)
     Route: 048
     Dates: start: 201701
  4. VORICONAZOLE. [Suspect]
     Active Substance: VORICONAZOLE
     Dosage: 6 MG/KG, 2X/DAY (LOADING DOSE 6 MG/KG (400 MG) EVERY 12 HOUR FOR TWO DOSES)
     Route: 048
     Dates: start: 201701

REACTIONS (5)
  - Hallucination [Unknown]
  - Confusional state [Unknown]
  - Drug ineffective [Unknown]
  - Eye irritation [Unknown]
  - Dizziness [Unknown]

NARRATIVE: CASE EVENT DATE: 2017
